FAERS Safety Report 19576996 (Version 1)
Quarter: 2021Q3

REPORT INFORMATION
  Report Type: Spontaneous
  Country: US (occurrence: US)
  Receive Date: 20210719
  Receipt Date: 20210719
  Transmission Date: 20211014
  Serious: No
  Sender: FDA-Public Use
  Company Number: US-GLENMARK PHARMACEUTICALS-2020GMK050777

PATIENT

DRUGS (3)
  1. MUPIROCIN OINTMENT USP, 2% [Suspect]
     Active Substance: MUPIROCIN
     Indication: PREOPERATIVE CARE
     Dosage: UNK, TID (3 TIMES A DAY, BOTH NOSTRILS /NAILS AND UMBILICUS FOR 10 DAYS BEFORE SURGERY)
     Route: 061
     Dates: start: 20201129, end: 20201202
  2. HIZENTRA [Concomitant]
     Active Substance: HUMAN IMMUNOGLOBULIN G
     Indication: COMBINED IMMUNODEFICIENCY
     Dosage: 50 MILLILITER EVERY TWO WEEKS
     Route: 058
     Dates: start: 2008
  3. MUPIROCIN OINTMENT USP, 2% [Suspect]
     Active Substance: MUPIROCIN
     Indication: INFECTION PROPHYLAXIS
     Dosage: UNK, TID (3 TIMES A DAY, BOTH NOSTRILS /NAILS AND UMBILICUS FOR 10 DAYS BEFORE SURGERY)
     Route: 045
     Dates: start: 20201125, end: 20201127

REACTIONS (5)
  - Ageusia [Not Recovered/Not Resolved]
  - Incorrect route of product administration [Unknown]
  - Product use in unapproved indication [Unknown]
  - Condition aggravated [Not Recovered/Not Resolved]
  - Anosmia [Not Recovered/Not Resolved]

NARRATIVE: CASE EVENT DATE: 202011
